FAERS Safety Report 17304428 (Version 1)
Quarter: 2020Q1

REPORT INFORMATION
  Report Type: Spontaneous
  Country: US (occurrence: US)
  Receive Date: 20200106
  Receipt Date: 20200106
  Transmission Date: 20200409
  Serious: No
  Sender: FDA-Public Use
  Company Number: None

PATIENT
  Age: 74 Year
  Sex: Female

DRUGS (1)
  1. BENLYSTA [Suspect]
     Active Substance: BELIMUMAB
     Dosage: ?          OTHER DOSE:200;OTHER FREQUENCY:UNKNOWN;?
     Route: 058

REACTIONS (4)
  - Incorrect dose administered [None]
  - Injection site extravasation [None]
  - Subcutaneous drug absorption impaired [None]
  - Device malfunction [None]

NARRATIVE: CASE EVENT DATE: 20200106
